FAERS Safety Report 9119222 (Version 1)
Quarter: 2013Q1

REPORT INFORMATION
  Report Type: Spontaneous
  Country: US (occurrence: US)
  Receive Date: 20130207
  Receipt Date: 20130207
  Transmission Date: 20140127
  Serious: Yes (Death)
  Sender: FDA-Public Use
  Company Number: CHPA2013US002431

PATIENT
  Age: 52 Year
  Sex: Female

DRUGS (5)
  1. ACETAMINOPHEN (PARACETAMOL) [Suspect]
     Dosage: UNK, UNK
     Route: 048
  2. SALICYLATES [Suspect]
     Dosage: UNK, UNK
     Route: 048
  3. GABAPENTIN [Suspect]
     Dosage: UNK, UNK
     Route: 048
  4. ACETAMINOPHEN W/HYDROCODONE [Suspect]
     Dosage: UNK, UNK
     Route: 048
  5. ETHANOL [Suspect]
     Dosage: UNK, UNK
     Route: 048

REACTIONS (1)
  - Completed suicide [Fatal]
